FAERS Safety Report 5609649-1 (Version None)
Quarter: 2008Q1

REPORT INFORMATION
  Report Type: 
  Country: None (occurrence: None)
  Receive Date: 20080131
  Receipt Date: 20080125
  Transmission Date: 20080703
  Serious: Yes (Disabling)
  Sender: FDA-Public Use
  Company Number: B0472647A

PATIENT
  Age: 21 Year
  Sex: Female

DRUGS (14)
  1. AUGMENTIN '125' [Suspect]
     Indication: TOOTHACHE
     Route: 048
     Dates: start: 20041111
  2. BACTROBAN [Concomitant]
     Indication: PHARYNGOTONSILLITIS
  3. TERMALGIN [Concomitant]
     Indication: PHARYNGOTONSILLITIS
  4. CLAVUMOX [Concomitant]
     Indication: PHARYNGOTONSILLITIS
  5. FLUDETEN [Concomitant]
     Indication: TENSION HEADACHE
  6. NEOBRUFEN [Concomitant]
     Indication: HEADACHE
  7. DOLALGIAL [Concomitant]
     Indication: TENSION HEADACHE
  8. NOLOTIL [Concomitant]
  9. ANTALGIN [Concomitant]
  10. MOTILIUM [Concomitant]
     Indication: VOMITING
  11. DESOGESTREL [Concomitant]
  12. UNKNOWN DRUG [Concomitant]
  13. PARACETAMOL [Concomitant]
     Indication: HEADACHE
  14. AMOXICILLIN + CLAVULANATE POTASSIUM [Concomitant]

REACTIONS (24)
  - ALANINE AMINOTRANSFERASE INCREASED [None]
  - ASPARTATE AMINOTRANSFERASE INCREASED [None]
  - BILIRUBIN CONJUGATED INCREASED [None]
  - BLOOD ALKALINE PHOSPHATASE INCREASED [None]
  - BLOOD BILIRUBIN INCREASED [None]
  - BLOOD IRON DECREASED [None]
  - BLOOD LACTATE DEHYDROGENASE INCREASED [None]
  - CHOLESTASIS [None]
  - CHRONIC HEPATITIS [None]
  - COAGULATION TEST ABNORMAL [None]
  - EOSINOPHIL COUNT DECREASED [None]
  - GAMMA-GLUTAMYLTRANSFERASE DECREASED [None]
  - GAMMA-GLUTAMYLTRANSFERASE INCREASED [None]
  - HAEMOGLOBIN DECREASED [None]
  - HEPATIC CIRRHOSIS [None]
  - HEPATIC FIBROSIS [None]
  - HEPATITIS TOXIC [None]
  - IRON BINDING CAPACITY TOTAL INCREASED [None]
  - LIVER DISORDER [None]
  - MEAN CELL HAEMOGLOBIN CONCENTRATION DECREASED [None]
  - PROTHROMBIN TIME SHORTENED [None]
  - RETICULOCYTE COUNT INCREASED [None]
  - TRANSAMINASES INCREASED [None]
  - TRANSFERRIN SATURATION DECREASED [None]
